FAERS Safety Report 22000106 (Version 1)
Quarter: 2023Q1

REPORT INFORMATION
  Report Type: Spontaneous
  Country: DE (occurrence: DE)
  Receive Date: 20230216
  Receipt Date: 20230216
  Transmission Date: 20230417
  Serious: Yes (Hospitalization, Other)
  Sender: FDA-Public Use
  Company Number: DE-BRISTOL-MYERS SQUIBB COMPANY-2023-022168

PATIENT
  Age: 54 Year
  Sex: Female
  Weight: 67 kg

DRUGS (1)
  1. ORENCIA [Suspect]
     Active Substance: ABATACEPT
     Indication: Psoriatic arthropathy
     Route: 058
     Dates: end: 20221228

REACTIONS (2)
  - Psoriasis [Unknown]
  - Wound [Recovered/Resolved]

NARRATIVE: CASE EVENT DATE: 20221221
